FAERS Safety Report 6123641-2 (Version None)
Quarter: 2009Q1

REPORT INFORMATION
  Report Type: 
  Country: None (occurrence: None)
  Receive Date: 20090317
  Receipt Date: 20090317
  Transmission Date: 20090719
  Serious: Yes (Other)
  Sender: FDA-Public Use
  Company Number: None

PATIENT
  Age: 34 Year
  Sex: Female
  Weight: 69.8539 kg

DRUGS (2)
  1. GABAPENTIN [Suspect]
     Indication: MULTIPLE SCLEROSIS
     Dosage: 2 TABS 3 TIMES DAILY ORAL
     Route: 048
     Dates: start: 20090303
  2. GABAPENTIN [Suspect]
     Indication: PAIN
     Dosage: 2 TABS 3 TIMES DAILY ORAL
     Route: 048
     Dates: start: 20090303

REACTIONS (5)
  - ANXIETY [None]
  - DYSPNOEA [None]
  - HYPERSENSITIVITY [None]
  - HYPOTENSION [None]
  - PRODUCT QUALITY ISSUE [None]
